FAERS Safety Report 19198011 (Version 1)
Quarter: 2021Q2

REPORT INFORMATION
  Report Type: Spontaneous
  Country: DE (occurrence: DE)
  Receive Date: 20210430
  Receipt Date: 20210430
  Transmission Date: 20210717
  Serious: Yes (Other)
  Sender: FDA-Public Use
  Company Number: DE-MACLEODS PHARMACEUTICALS US LTD-MAC2021030969

PATIENT

DRUGS (1)
  1. IBANDRONATE [Suspect]
     Active Substance: IBANDRONATE SODIUM
     Indication: BONE MARROW OEDEMA
     Dosage: 2 DOSAGE FORM, TOTAL
     Route: 042

REACTIONS (2)
  - Bone marrow oedema [Recovered/Resolved]
  - Condition aggravated [Recovered/Resolved]
